FAERS Safety Report 10111558 (Version 2)
Quarter: 2014Q2

REPORT INFORMATION
  Report Type: Spontaneous
  Country: AU (occurrence: AU)
  Receive Date: 20140425
  Receipt Date: 20140425
  Transmission Date: 20141212
  Serious: Yes (Death, Hospitalization)
  Sender: FDA-Public Use
  Company Number: PHHY2012AU063236

PATIENT
  Age: 41 Year
  Sex: Female

DRUGS (5)
  1. METOCLOPRAMIDE [Suspect]
     Indication: VOMITING
  2. OLANZAPINE [Suspect]
     Indication: PANIC ATTACK
  3. PHENOXYBENZAMINE [Concomitant]
  4. RADIOTHERAPY [Concomitant]
  5. ANGIOTENSIN CONVERTING ENZYME BLOCKERS [Concomitant]
     Indication: HYPERTENSION

REACTIONS (12)
  - Sepsis [Fatal]
  - Phaeochromocytoma [Unknown]
  - Anxiety [Recovering/Resolving]
  - Nausea [Unknown]
  - Vomiting [Unknown]
  - Panic attack [Unknown]
  - Tremor [Unknown]
  - Hyperhidrosis [Recovered/Resolved]
  - Hypertension [Unknown]
  - Body temperature increased [Unknown]
  - Flushing [Unknown]
  - Cyanosis [Unknown]
